FAERS Safety Report 8482852-1 (Version None)
Quarter: 2012Q3

REPORT INFORMATION
  Report Type: 
  Country: None (occurrence: None)
  Receive Date: 20120702
  Receipt Date: 20120622
  Transmission Date: 20120928
  Serious: Yes (Other)
  Sender: FDA-Public Use
  Company Number: US-US-EMD SERONO, INC.-7143164

PATIENT
  Sex: Female

DRUGS (3)
  1. PRINIVIL [Concomitant]
     Indication: HYPERTENSION
  2. LISINOPRIL [Concomitant]
     Indication: HYPERTENSION
  3. REBIF [Suspect]
     Indication: MULTIPLE SCLEROSIS
     Route: 058
     Dates: start: 20021216

REACTIONS (6)
  - DIZZINESS [None]
  - FALL [None]
  - LIMB CRUSHING INJURY [None]
  - GLUCOSE TOLERANCE IMPAIRED [None]
  - HYPOTHYROIDISM [None]
  - INJECTION SITE HAEMORRHAGE [None]
